FAERS Safety Report 19778392 (Version 1)
Quarter: 2021Q3

REPORT INFORMATION
  Report Type: Spontaneous
  Country: TR (occurrence: TR)
  Receive Date: 20210902
  Receipt Date: 20210902
  Transmission Date: 20211014
  Serious: Yes (Hospitalization, Other)
  Sender: FDA-Public Use
  Company Number: TR-SUN PHARMACEUTICAL INDUSTRIES LTD-2021R1-309530

PATIENT
  Age: 64 Year
  Sex: Male

DRUGS (1)
  1. LITHIUM. [Suspect]
     Active Substance: LITHIUM
     Indication: BIPOLAR DISORDER
     Dosage: 600 MILLIGRAM, DAILY
     Route: 065

REACTIONS (5)
  - Hypophagia [Unknown]
  - Toxicity to various agents [Unknown]
  - Tremor [Unknown]
  - Drug level above therapeutic [Unknown]
  - Disorientation [Unknown]
